FAERS Safety Report 14401929 (Version 1)
Quarter: 2018Q1

REPORT INFORMATION
  Report Type: Spontaneous
  Country: US (occurrence: US)
  Receive Date: 20180117
  Receipt Date: 20180117
  Transmission Date: 20180509
  Serious: No
  Sender: FDA-Public Use
  Company Number: US-PERRIGO-17US003546

PATIENT
  Age: 51 Year
  Sex: Female
  Weight: 49.89 kg

DRUGS (2)
  1. NYSTATIN. [Suspect]
     Active Substance: NYSTATIN
     Dosage: LIBERAL AMOUNT, 1-2 TIMES DAILY
     Route: 061
     Dates: start: 201704, end: 20170424
  2. NYSTATIN. [Suspect]
     Active Substance: NYSTATIN
     Indication: TINEA PEDIS
     Dosage: LIBERAL AMOUNT, 1-2 TIMES DAILY
     Route: 061
     Dates: start: 201702, end: 201703

REACTIONS (2)
  - Inappropriate schedule of drug administration [Recovered/Resolved]
  - Drug ineffective [Unknown]

NARRATIVE: CASE EVENT DATE: 201702
